FAERS Safety Report 7094143-4 (Version None)
Quarter: 2010Q4

REPORT INFORMATION
  Report Type: 
  Country: None (occurrence: None)
  Receive Date: 20101110
  Receipt Date: 20101101
  Transmission Date: 20110411
  Serious: Yes (Death, Other)
  Sender: FDA-Public Use
  Company Number: JP-SANOFI-AVENTIS-2010SA022698

PATIENT
  Age: 59 Year
  Sex: Male

DRUGS (40)
  1. OXALIPLATIN [Suspect]
     Indication: RECTAL CANCER
     Route: 041
     Dates: start: 20100112, end: 20100112
  2. OXALIPLATIN [Suspect]
     Route: 041
     Dates: start: 20100413, end: 20100413
  3. XELODA [Suspect]
     Indication: RECTAL CANCER
     Route: 048
     Dates: start: 20100112, end: 20100415
  4. DEXAMETHASONE SODIUM PHOSPHATE [Concomitant]
     Indication: PREMEDICATION
     Route: 041
     Dates: start: 20100112, end: 20100413
  5. SEROTONE [Concomitant]
     Indication: PREMEDICATION
     Route: 041
     Dates: start: 20100112, end: 20100413
  6. CHLOR-TRIMETON [Concomitant]
     Indication: PREMEDICATION
     Route: 041
     Dates: start: 20100112, end: 20100413
  7. GASTER [Concomitant]
     Indication: PREMEDICATION
     Route: 041
     Dates: start: 20100112, end: 20100413
  8. CALCICOL [Concomitant]
     Indication: PREMEDICATION
     Route: 041
     Dates: start: 20100112, end: 20100426
  9. CALCICOL [Concomitant]
     Route: 041
     Dates: start: 20100112, end: 20100426
  10. MAGNESIUM SULFATE [Concomitant]
     Indication: PREMEDICATION
     Route: 041
     Dates: start: 20100112, end: 20100413
  11. MUCODYNE [Concomitant]
     Route: 048
     Dates: start: 20100106, end: 20100415
  12. HUSTAZOL [Concomitant]
     Route: 048
     Dates: start: 20100106, end: 20100115
  13. BIOFERMIN [Concomitant]
     Indication: GASTROINTESTINAL DISORDER
     Route: 048
     Dates: start: 20100106, end: 20100415
  14. DEPAS [Concomitant]
     Indication: ANXIETY DISORDER
     Route: 048
     Dates: start: 20100106, end: 20100415
  15. LENDORMIN [Concomitant]
     Indication: INSOMNIA
     Route: 048
     Dates: start: 20100106, end: 20100415
  16. LOXONIN [Concomitant]
     Indication: HEADACHE
     Route: 048
     Dates: start: 20100112, end: 20100413
  17. BUSCOPAN [Concomitant]
     Indication: ILEUS
     Route: 041
     Dates: start: 20100124, end: 20100124
  18. PENTAZOCINE LACTATE [Concomitant]
     Indication: PAIN
     Route: 041
     Dates: start: 20100124, end: 20100124
  19. ATARAX [Concomitant]
     Indication: PAIN
     Route: 041
     Dates: start: 20100124, end: 20100124
  20. FIRSTCIN [Concomitant]
     Route: 041
     Dates: start: 20100228, end: 20100301
  21. CEFMETAZON [Concomitant]
     Route: 041
     Dates: start: 20100302, end: 20100305
  22. LASIX [Concomitant]
     Indication: OLIGURIA
     Route: 041
     Dates: start: 20100416, end: 20100416
  23. PROPOFOL [Concomitant]
     Indication: SEDATION
     Route: 041
     Dates: start: 20100416, end: 20100416
  24. MIDAZOLAM [Concomitant]
     Indication: SEDATION
     Route: 041
     Dates: start: 20100416, end: 20100513
  25. GLOVENIN [Concomitant]
     Indication: INFECTION
     Route: 041
     Dates: start: 20100416, end: 20100416
  26. NORADRENALINE [Concomitant]
     Indication: SHOCK
     Route: 041
     Dates: start: 20100416, end: 20100416
  27. HANP [Concomitant]
     Indication: CARDIAC FAILURE
     Route: 041
     Dates: start: 20100416, end: 20100421
  28. MEYLON [Concomitant]
     Indication: ACIDOSIS
     Route: 041
     Dates: start: 20100416, end: 20100428
  29. LEPETAN [Concomitant]
     Indication: SEDATION
     Route: 041
     Dates: start: 20100419, end: 20100513
  30. ZOSYN [Concomitant]
     Indication: ANTIBIOTIC THERAPY
     Route: 041
     Dates: start: 20100419, end: 20100423
  31. CIPROFLOXACIN HCL [Concomitant]
     Indication: ANTIBIOTIC THERAPY
     Route: 041
     Dates: start: 20100419, end: 20100507
  32. ANTHROBIN P [Concomitant]
     Indication: DISSEMINATED INTRAVASCULAR COAGULATION
     Route: 041
     Dates: start: 20100419, end: 20100420
  33. HEPARIN SODIUM [Concomitant]
     Indication: DISSEMINATED INTRAVASCULAR COAGULATION
     Route: 041
     Dates: start: 20100419, end: 20100422
  34. NICARPINE [Concomitant]
     Indication: HYPERTENSION
     Route: 041
     Dates: start: 20100421, end: 20100421
  35. VASOLAN [Concomitant]
     Indication: ARRHYTHMIA
     Route: 041
     Dates: start: 20100422, end: 20100423
  36. PANTOL [Concomitant]
     Indication: ILEUS
     Route: 041
     Dates: start: 20100423, end: 20100510
  37. AMPICILLIN [Concomitant]
     Indication: ANTIBIOTIC THERAPY
     Route: 042
     Dates: start: 20100424, end: 20100428
  38. FUNGUARD [Concomitant]
     Indication: ANTIFUNGAL TREATMENT
     Route: 041
     Dates: start: 20100428, end: 20100511
  39. TARGOCID [Concomitant]
     Indication: ANTIBIOTIC THERAPY
     Route: 041
     Dates: start: 20100428, end: 20100512
  40. DOBUTAMINE HYDROCHLORIDE [Concomitant]
     Indication: CARDIAC FAILURE
     Route: 041
     Dates: start: 20100504, end: 20100506

REACTIONS (5)
  - ACUTE RESPIRATORY DISTRESS SYNDROME [None]
  - ANAPHYLACTIC REACTION [None]
  - DYSPNOEA [None]
  - INTERSTITIAL LUNG DISEASE [None]
  - PNEUMONIA BACTERIAL [None]
